FAERS Safety Report 17979315 (Version 1)
Quarter: 2020Q3

REPORT INFORMATION
  Report Type: Spontaneous
  Country: IN (occurrence: IN)
  Receive Date: 20200703
  Receipt Date: 20200703
  Transmission Date: 20201103
  Serious: Yes (Hospitalization, Other)
  Sender: FDA-Public Use
  Company Number: IN-MICRO LABS LIMITED-ML2020-01921

PATIENT
  Age: 50 Year
  Sex: Female

DRUGS (5)
  1. VERAPAMIL HYDROCHLORIDE. [Suspect]
     Active Substance: VERAPAMIL HYDROCHLORIDE
     Indication: ACCELERATED IDIOVENTRICULAR RHYTHM
     Dosage: 10 MG
     Route: 042
  2. METOPROLOL. [Suspect]
     Active Substance: METOPROLOL
     Indication: ACCELERATED IDIOVENTRICULAR RHYTHM
     Dosage: 10 MG
     Route: 042
  3. METOPROLOL. [Suspect]
     Active Substance: METOPROLOL
     Dosage: 50 MG OD
  4. ADENOSINE. [Suspect]
     Active Substance: ADENOSINE
     Indication: ACCELERATED IDIOVENTRICULAR RHYTHM
     Dosage: 12 MG
     Route: 042
  5. AMIODARONE [Concomitant]
     Active Substance: AMIODARONE
     Dosage: 200 MG OD

REACTIONS (1)
  - Drug ineffective [Recovered/Resolved]
